FAERS Safety Report 9797573 (Version 1)
Quarter: 2014Q1

REPORT INFORMATION
  Report Type: Spontaneous
  Country: US (occurrence: US)
  Receive Date: 20140106
  Receipt Date: 20140106
  Transmission Date: 20141002
  Serious: Yes (Other)
  Sender: FDA-Public Use
  Company Number: US-GE HEALTHCARE MEDICAL DIAGNOSTICS-VISP-PR-1312L-1003

PATIENT
  Age: 81 Year
  Sex: Female

DRUGS (15)
  1. VISIPAQUE [Suspect]
     Indication: LUNG CARCINOMA CELL TYPE UNSPECIFIED STAGE IV
     Route: 042
  2. VISIPAQUE [Suspect]
     Indication: DIAGNOSTIC PROCEDURE
  3. ERLOTINIB [Concomitant]
  4. PIOGLITAZONE [Concomitant]
  5. ASPIRIN [Concomitant]
  6. ROSUVASTATIN [Concomitant]
  7. ALENDRONATE [Concomitant]
  8. HYDRALAZINE [Concomitant]
  9. AMLODIPINE [Concomitant]
  10. TORSEMIDE [Concomitant]
  11. TELMISARTAN [Concomitant]
  12. BISOPROLOL [Concomitant]
  13. ALPRAZOLAM [Concomitant]
  14. PAROXETINE [Concomitant]
  15. CYCLOSPORINE OPTHALMIC EMULSION [Concomitant]

REACTIONS (3)
  - Skin reaction [Recovered/Resolved]
  - Sialoadenitis [Recovered/Resolved]
  - Conjunctivitis [Recovered/Resolved]
